FAERS Safety Report 20100116 (Version 1)
Quarter: 2021Q4

REPORT INFORMATION
  Report Type: Spontaneous
  Country: FR (occurrence: FR)
  Receive Date: 20211123
  Receipt Date: 20211123
  Transmission Date: 20220303
  Serious: Yes (Other)
  Sender: FDA-Public Use
  Company Number: FR-CPL-002646

PATIENT
  Age: 21 Year

DRUGS (2)
  1. METRONIDAZOLE [Suspect]
     Active Substance: METRONIDAZOLE
     Indication: Dental care
  2. SPIRAMYCIN ACETYLATE [Concomitant]
     Indication: Dental care

REACTIONS (2)
  - Cholestasis [Unknown]
  - Jaundice [Recovered/Resolved]
